FAERS Safety Report 8968601 (Version 1)
Quarter: 2012Q4

REPORT INFORMATION
  Report Type: 
  Country: US (occurrence: US)
  Receive Date: 20121217
  Receipt Date: 20121217
  Transmission Date: 20130627
  Serious: Yes (Other)
  Sender: FDA-Public Use
  Company Number: US-ASTRAZENECA-2012SE91853

PATIENT
  Age: 26 Year
  Sex: Female
  Weight: 122.5 kg

DRUGS (4)
  1. SEROQUEL [Suspect]
     Indication: BIPOLAR DISORDER
     Route: 048
     Dates: start: 2006
  2. SEROQUEL [Suspect]
     Indication: BIPOLAR DISORDER
     Route: 048
     Dates: start: 20121201
  3. SEROQUEL [Suspect]
     Indication: BIPOLAR DISORDER
     Route: 048
     Dates: start: 20121204
  4. BANCH OF PSYCHIATRIC DRUGS [Concomitant]

REACTIONS (4)
  - Suicidal ideation [Unknown]
  - Feeling abnormal [Unknown]
  - Insomnia [Recovered/Resolved]
  - Off label use [Unknown]
